FAERS Safety Report 12130519 (Version 2)
Quarter: 2017Q2

REPORT INFORMATION
  Report Type: Spontaneous
  Country: IN (occurrence: IN)
  Receive Date: 20160301
  Receipt Date: 20170424
  Transmission Date: 20170829
  Serious: Yes (Death, Life-Threatening, Other)
  Sender: FDA-Public Use
  Company Number: IN-SUN PHARMACEUTICAL INDUSTRIES LTD-2016R1-112114

PATIENT
  Age: 10 Year
  Sex: Female

DRUGS (1)
  1. VECURONIUM [Suspect]
     Active Substance: VECURONIUM BROMIDE
     Indication: PARALYSIS
     Route: 065

REACTIONS (2)
  - Cardiac arrest [Fatal]
  - Bradycardia [Not Recovered/Not Resolved]
